FAERS Safety Report 19200067 (Version 4)
Quarter: 2022Q2

REPORT INFORMATION
  Report Type: Spontaneous
  Country: US (occurrence: US)
  Receive Date: 20210430
  Receipt Date: 20220511
  Transmission Date: 20220721
  Serious: Yes (Hospitalization, Other)
  Sender: FDA-Public Use
  Company Number: US-GLAXOSMITHKLINE-US2021091591

PATIENT
  Age: 79 Year
  Sex: Female

DRUGS (1)
  1. ANORO ELLIPTA [Suspect]
     Active Substance: UMECLIDINIUM BROMIDE\VILANTEROL TRIFENATATE
     Indication: Chronic obstructive pulmonary disease
     Dosage: 1 PUFF(S), QD 62.5/25MCG
     Dates: start: 20140102

REACTIONS (7)
  - Hip fracture [Recovered/Resolved]
  - Blood disorder [Unknown]
  - Lung lobectomy [Unknown]
  - Leukaemia [Recovered/Resolved]
  - Lung disorder [Unknown]
  - Pulmonary mass [Recovered/Resolved]
  - Fall [Unknown]

NARRATIVE: CASE EVENT DATE: 20201201
